FAERS Safety Report 8394086-X (Version None)
Quarter: 2012Q2

REPORT INFORMATION
  Report Type: 
  Country: None (occurrence: None)
  Receive Date: 20120530
  Receipt Date: 20120521
  Transmission Date: 20120825
  Serious: Yes (Hospitalization)
  Sender: FDA-Public Use
  Company Number: FR-JNJFOC-20120517756

PATIENT
  Sex: Male

DRUGS (3)
  1. REMICADE [Suspect]
     Route: 042
     Dates: start: 20120420
  2. REMICADE [Suspect]
     Indication: CROHN'S DISEASE
     Route: 042
     Dates: start: 20120504
  3. REMICADE [Suspect]
     Route: 042
     Dates: start: 20110101

REACTIONS (4)
  - INFUSION RELATED REACTION [None]
  - ERYTHEMA [None]
  - TACHYCARDIA [None]
  - INTESTINAL OBSTRUCTION [None]
